FAERS Safety Report 5573216-9 (Version None)
Quarter: 2007Q4

REPORT INFORMATION
  Report Type: 
  Country: None (occurrence: None)
  Receive Date: 20071220
  Receipt Date: 20071205
  Transmission Date: 20080405
  Serious: Yes (Other)
  Sender: FDA-Public Use
  Company Number: 100#08#2007-02038

PATIENT
  Age: 16 Year
  Sex: Female

DRUGS (5)
  1. METHOTREXATE [Suspect]
     Indication: BONE SARCOMA
     Dosage: 12 G/M2 (18G)  FIRST COURSE RECEIVED, 10 G 16 ADDITIONAL COURSES
  2. DANTROLENE (DANTROLENE) (CANTROLENE) [Suspect]
     Indication: ANALGESIA
     Dosage: ORAL
     Route: 048
  3. ONDANSETRON [Concomitant]
  4. METHYLPREDNISOLONE [Concomitant]
  5. NALBUPHINE (NALBUPHINE) (NALBUPHINE) [Concomitant]

REACTIONS (15)
  - ANAEMIA [None]
  - BLOOD PRESSURE INCREASED [None]
  - CONVULSION [None]
  - CYTOLYTIC HEPATITIS [None]
  - DRUG INTERACTION [None]
  - DRUG TOXICITY [None]
  - HEADACHE [None]
  - MUCOSAL INFLAMMATION [None]
  - NEUTROPENIA [None]
  - OEDEMA [None]
  - PYREXIA [None]
  - RENAL FAILURE [None]
  - RENAL TUBULAR DISORDER [None]
  - THROMBOCYTOPENIA [None]
  - VISUAL DISTURBANCE [None]
